FAERS Safety Report 21132503 (Version 1)
Quarter: 2022Q3

REPORT INFORMATION
  Report Type: Spontaneous
  Country: US (occurrence: None)
  Receive Date: 20220726
  Receipt Date: 20220726
  Transmission Date: 20221027
  Serious: Yes (Other)
  Sender: FDA-Public Use
  Company Number: None

PATIENT
  Age: 65 Year
  Sex: Female

DRUGS (1)
  1. HUMIRA [Suspect]
     Active Substance: ADALIMUMAB
     Indication: Rheumatoid arthritis
     Dosage: OTHER FREQUENCY : Q2W;?
     Route: 058
     Dates: start: 20220324, end: 20220721

REACTIONS (2)
  - Cardiac failure [None]
  - Therapy cessation [None]

NARRATIVE: CASE EVENT DATE: 20220726
